FAERS Safety Report 19020219 (Version 8)
Quarter: 2024Q2

REPORT INFORMATION
  Report Type: Spontaneous
  Country: US (occurrence: US)
  Receive Date: 20210317
  Receipt Date: 20240402
  Transmission Date: 20240716
  Serious: No
  Sender: FDA-Public Use
  Company Number: US-PFIZER INC-2021228676

PATIENT
  Age: 70 Year
  Sex: Female
  Weight: 81.65 kg

DRUGS (1)
  1. IBRANCE [Suspect]
     Active Substance: PALBOCICLIB
     Indication: Bone cancer
     Dosage: DAILY FOR 21 DAYS AND THEN 7 DAYS OFF
     Route: 048

REACTIONS (3)
  - Hypoacusis [Unknown]
  - Malaise [Unknown]
  - Off label use [Unknown]
